FAERS Safety Report 15444670 (Version 1)
Quarter: 2018Q3

REPORT INFORMATION
  Report Type: Spontaneous
  Country: US (occurrence: US)
  Receive Date: 20180928
  Receipt Date: 20180928
  Transmission Date: 20181010
  Serious: No
  Sender: FDA-Public Use
  Company Number: US-SA-2018SA268922

PATIENT
  Age: 60 Year
  Sex: Female

DRUGS (9)
  1. DUPIXENT [Suspect]
     Active Substance: DUPILUMAB
     Dosage: 300 MG, QOW
     Dates: start: 20180821
  2. ATORVASTATIN [Concomitant]
     Active Substance: ATORVASTATIN
  3. THIOTHIXENE [TIOTIXENE] [Concomitant]
  4. CELECOXIB. [Concomitant]
     Active Substance: CELECOXIB
  5. HALOBETASOL [Concomitant]
     Active Substance: HALOBETASOL PROPIONATE
  6. MOMETASONE [Concomitant]
     Active Substance: MOMETASONE
  7. LEVOTHYROXINE. [Concomitant]
     Active Substance: LEVOTHYROXINE
  8. DULOXETINE. [Concomitant]
     Active Substance: DULOXETINE
  9. QUETIAPINE. [Concomitant]
     Active Substance: QUETIAPINE

REACTIONS (3)
  - Injection site pain [Not Recovered/Not Resolved]
  - Hypersensitivity [Not Recovered/Not Resolved]
  - Rash [Not Recovered/Not Resolved]

NARRATIVE: CASE EVENT DATE: 201809
